FAERS Safety Report 6356495-X (Version None)
Quarter: 2009Q3

REPORT INFORMATION
  Report Type: 
  Country: None (occurrence: None)
  Receive Date: 20090915
  Receipt Date: 20090907
  Transmission Date: 20100115
  Serious: Yes (Other)
  Sender: FDA-Public Use
  Company Number: B0573315A

PATIENT
  Age: 31 Year
  Sex: Male

DRUGS (2)
  1. AROPAX [Suspect]
     Indication: ANXIETY
     Route: 065
     Dates: start: 20010101, end: 20070101
  2. ECSTASY [Concomitant]

REACTIONS (8)
  - ANXIETY [None]
  - DEPRESSION [None]
  - FEELING ABNORMAL [None]
  - FLAT AFFECT [None]
  - NERVOUS SYSTEM DISORDER [None]
  - QUALITY OF LIFE DECREASED [None]
  - SENSORY DISTURBANCE [None]
  - SUICIDAL BEHAVIOUR [None]
